FAERS Safety Report 20141377 (Version 1)
Quarter: 2021Q4

REPORT INFORMATION
  Report Type: Spontaneous
  Country: AU (occurrence: AU)
  Receive Date: 20211202
  Receipt Date: 20211202
  Transmission Date: 20220303
  Serious: Yes (Other)
  Sender: FDA-Public Use
  Company Number: AU-MYLANLABS-2021M1089640

PATIENT
  Age: 30 Year
  Sex: Female

DRUGS (6)
  1. METHOTREXATE [Suspect]
     Active Substance: METHOTREXATE
     Indication: Central nervous system lymphoma
     Dosage: UNK, HIGH DOSE
     Route: 065
  2. METHOTREXATE [Suspect]
     Active Substance: METHOTREXATE
     Indication: Post transplant lymphoproliferative disorder
  3. RITUXIMAB [Suspect]
     Active Substance: RITUXIMAB
     Indication: Central nervous system lymphoma
     Dosage: UNK
     Route: 065
  4. RITUXIMAB [Suspect]
     Active Substance: RITUXIMAB
     Indication: Post transplant lymphoproliferative disorder
  5. IBRUTINIB [Concomitant]
     Active Substance: IBRUTINIB
     Indication: Central nervous system lymphoma
     Dosage: 560 MILLIGRAM, QD, SCHEDULED FOR 12 MONTHS
     Route: 048
  6. IBRUTINIB [Concomitant]
     Active Substance: IBRUTINIB
     Indication: Post transplant lymphoproliferative disorder
     Dosage: UNK, DOSE REDUCED
     Route: 065

REACTIONS (1)
  - Drug ineffective [Unknown]
